FAERS Safety Report 17261630 (Version 1)
Quarter: 2020Q1

REPORT INFORMATION
  Report Type: Spontaneous
  Country: NL (occurrence: NL)
  Receive Date: 20200113
  Receipt Date: 20200113
  Transmission Date: 20200409
  Serious: Yes (Hospitalization)
  Sender: FDA-Public Use
  Company Number: NL-TEVA-2020-NL-1167125

PATIENT
  Age: 86 Year
  Sex: Male
  Weight: 85 kg

DRUGS (7)
  1. SPIRONOLACTON [Concomitant]
     Active Substance: SPIRONOLACTONE
  2. METFORMINE [Concomitant]
     Active Substance: METFORMIN HYDROCHLORIDE
  3. METOPROLOL. [Concomitant]
     Active Substance: METOPROLOL
  4. RAMIPRIL. [Concomitant]
     Active Substance: RAMIPRIL
  5. PANTOPRAZOL [Suspect]
     Active Substance: PANTOPRAZOLE SODIUM
     Indication: PRODUCT USED FOR UNKNOWN INDICATION
     Dosage: 40 MILLIGRAM DAILY;
     Dates: start: 20191008, end: 20191216
  6. ELIQUIS [Concomitant]
     Active Substance: APIXABAN
  7. ATORVASTATINE [Concomitant]
     Active Substance: ATORVASTATIN

REACTIONS (1)
  - Electrolyte imbalance [Not Recovered/Not Resolved]

NARRATIVE: CASE EVENT DATE: 20191216
